FAERS Safety Report 9127064 (Version 1)
Quarter: 2013Q1

REPORT INFORMATION
  Report Type: Spontaneous
  Country: US (occurrence: US)
  Receive Date: 20130228
  Receipt Date: 20130228
  Transmission Date: 20140127
  Serious: No
  Sender: FDA-Public Use
  Company Number: US-009507513-1302USA010778

PATIENT
  Age: 43 Year
  Sex: Male

DRUGS (1)
  1. ZETIA [Suspect]
     Dosage: 10 MG, UNK
     Route: 048
     Dates: start: 20130210, end: 20130211

REACTIONS (3)
  - Nervousness [Recovered/Resolved]
  - Somnolence [Recovered/Resolved]
  - Tremor [Recovered/Resolved]
